FAERS Safety Report 10158056 (Version 2)
Quarter: 2014Q2

REPORT INFORMATION
  Report Type: Spontaneous
  Country: CH (occurrence: CH)
  Receive Date: 20140507
  Receipt Date: 20140509
  Transmission Date: 20141212
  Serious: Yes (Hospitalization)
  Sender: FDA-Public Use
  Company Number: CH-PFIZER INC-2014120218

PATIENT
  Age: 62 Year
  Sex: Female

DRUGS (6)
  1. SORTIS [Suspect]
     Dosage: 40 MG, 1X/DAY
     Route: 048
     Dates: start: 20140121
  2. PANTOPRAZOLE [Suspect]
     Dosage: 20 MG, 1X/DAY
     Route: 048
     Dates: start: 20140313
  3. BACTRIM [Suspect]
     Indication: STERNITIS
     Dosage: 1 DF, 3X/DAY
     Route: 048
     Dates: start: 20140313, end: 20140322
  4. RIFAMPICIN [Suspect]
     Indication: STERNITIS
     Dosage: 450 MG, 2X/DAY
     Route: 048
     Dates: start: 20140313, end: 20140322
  5. ASPIRINE [Suspect]
     Dosage: 100 MG, 1X/DAY
     Route: 048
  6. VANCOMYCIN HYDROCHLORIDE [Concomitant]
     Indication: STERNITIS
     Dosage: UNK
     Route: 041
     Dates: start: 20140213, end: 20140313

REACTIONS (2)
  - Purpura [Recovered/Resolved]
  - Cutaneous vasculitis [Recovered/Resolved]
